FAERS Safety Report 9960492 (Version 1)
Quarter: 2014Q1

REPORT INFORMATION
  Report Type: Spontaneous
  Country: US (occurrence: None)
  Receive Date: 20140228
  Receipt Date: 20140228
  Transmission Date: 20141002
  Serious: Yes (Other)
  Sender: FDA-Public Use
  Company Number: 2014EXPUS00174

PATIENT
  Sex: Male

DRUGS (5)
  1. EXPAREL [Suspect]
     Indication: POSTOPERATIVE ANALGESIA
     Dosage: INJECTION
     Dates: start: 20140219, end: 20140219
  2. ANCEF [Suspect]
     Indication: PRODUCT USED FOR UNKNOWN INDICATION
     Dates: start: 20140219, end: 20140219
  3. PROPOFOL [Concomitant]
  4. FENTANYL [Concomitant]
  5. ZOFRAN [Concomitant]

REACTIONS (3)
  - Blood pressure decreased [None]
  - Rash generalised [None]
  - Urticaria [None]
